FAERS Safety Report 9643173 (Version 1)
Quarter: 2013Q4

REPORT INFORMATION
  Report Type: Spontaneous
  Country: US (occurrence: None)
  Receive Date: 20131022
  Receipt Date: 20131022
  Transmission Date: 20140711
  Serious: Yes (Hospitalization)
  Sender: FDA-Public Use
  Company Number: 2012-590

PATIENT
  Age: 62 Year
  Sex: Female

DRUGS (3)
  1. PRIALT (ZICONOTIDE) INTRATHECAL INFUSION [Suspect]
     Indication: PAIN
     Dosage: UNK, UG, QH, INTHRATHECAL
     Route: 037
  2. CLONIDINE (CLONIDINE) INJECTION [Suspect]
     Indication: PAIN
     Dosage: UNK, UG, QH, INTRATHECAL
     Route: 037
  3. MORPHINE SULFATE (MORPHINE SULFATE) INJECTION [Suspect]
     Indication: PAIN
     Dosage: UNK MG ONCE/HOUR INTRATHECAL
     Route: 037

REACTIONS (3)
  - Diverticulitis [None]
  - Gastroenteritis viral [None]
  - Gastrointestinal pain [None]
